FAERS Safety Report 5894424-3 (Version None)
Quarter: 2008Q3

REPORT INFORMATION
  Report Type: 
  Country: None (occurrence: None)
  Receive Date: 20080922
  Receipt Date: 20080922
  Transmission Date: 20090109
  Serious: Yes (Hospitalization)
  Sender: FDA-Public Use
  Company Number: None

PATIENT
  Age: 69 Year
  Sex: Female

DRUGS (2)
  1. BONIVA [Suspect]
     Indication: OSTEOPOROSIS
     Dosage: 150 MG 1 PER MONTH
     Dates: start: 20050501, end: 20071201
  2. CORTISONE (CORTISONE ACETATE) [Suspect]
     Indication: DRUG USE FOR UNKNOWN INDICATION

REACTIONS (5)
  - BONE DISORDER [None]
  - CARDIO-RESPIRATORY ARREST [None]
  - GASTROINTESTINAL DISORDER [None]
  - NERVE INJURY [None]
  - RENAL FAILURE [None]
